FAERS Safety Report 17072412 (Version 1)
Quarter: 2019Q4

REPORT INFORMATION
  Report Type: Spontaneous
  Country: US (occurrence: US)
  Receive Date: 20191123
  Receipt Date: 20191123
  Transmission Date: 20200122
  Serious: Yes (Disabling)
  Sender: FDA-Public Use
  Company Number: None

PATIENT
  Age: 56 Year
  Sex: Male
  Weight: 90 kg

DRUGS (9)
  1. GARLIC EXTRACT [Concomitant]
     Active Substance: GARLIC
  2. MULTIVITAMIN [Concomitant]
     Active Substance: VITAMINS
  3. MAGNESIUM [Concomitant]
     Active Substance: MAGNESIUM
  4. UBIQUINOL +PQQ [Concomitant]
  5. VITAMIN D3 [Concomitant]
     Active Substance: CHOLECALCIFEROL
  6. ASPIRIN 81MG DAILY [Concomitant]
     Active Substance: ASPIRIN
  7. VITAMIN B12 [Concomitant]
     Active Substance: CYANOCOBALAMIN
  8. CIPROFLOXACIN HCL 500MG TAB [Suspect]
     Active Substance: CIPROFLOXACIN
     Indication: GASTROINTESTINAL BACTERIAL OVERGROWTH
     Dosage: ?          QUANTITY:1 TABLET(S);?
     Route: 048
     Dates: start: 20191111, end: 20191116
  9. OMEGA 3-6-9 [Concomitant]
     Active Substance: FISH OIL

REACTIONS (3)
  - Fatigue [None]
  - Dizziness [None]
  - Toxicity to various agents [None]

NARRATIVE: CASE EVENT DATE: 20191116
